FAERS Safety Report 8327649-8 (Version None)
Quarter: 2012Q2

REPORT INFORMATION
  Report Type: 
  Country: None (occurrence: None)
  Receive Date: 20120502
  Receipt Date: 20120418
  Transmission Date: 20120825
  Serious: Yes (Other)
  Sender: FDA-Public Use
  Company Number: CN-JNJFOC-20110613005

PATIENT
  Sex: Female
  Weight: 60 kg

DRUGS (3)
  1. ULTRACET [Suspect]
     Indication: TENOSYNOVITIS
     Dosage: 3 TABLETS IN A DAY/(ACETAMINOPHEN 325 MG  TRAMADOL HCL 37.5 MG)
     Route: 048
     Dates: start: 20110622, end: 20110624
  2. INSULIN [Interacting]
     Indication: DIABETES MELLITUS
     Route: 058
  3. ULTRACET [Suspect]
     Indication: PAIN
     Dosage: 3 TABLETS IN A DAY/(ACETAMINOPHEN 325 MG  TRAMADOL HCL 37.5 MG)
     Route: 048
     Dates: start: 20110622, end: 20110624

REACTIONS (6)
  - BLOOD GLUCOSE DECREASED [None]
  - DRUG INTERACTION [None]
  - DIZZINESS [None]
  - HYPOGLYCAEMIA [None]
  - SWEAT GLAND DISORDER [None]
  - PALPITATIONS [None]
